FAERS Safety Report 24201328 (Version 1)
Quarter: 2024Q3

REPORT INFORMATION
  Report Type: Spontaneous
  Country: KR (occurrence: KR)
  Receive Date: 20240812
  Receipt Date: 20240812
  Transmission Date: 20241016
  Serious: Yes (Hospitalization, Other)
  Sender: ACCORD
  Company Number: KR-MLMSERVICE-20240725-PI143233-00232-1

PATIENT
  Age: 54 Year
  Sex: Female

DRUGS (3)
  1. MYCOPHENOLATE MOFETIL [Suspect]
     Active Substance: MYCOPHENOLATE MOFETIL
     Indication: Immunosuppressant drug therapy
     Dates: start: 2015, end: 2022
  2. TACROLIMUS [Suspect]
     Active Substance: TACROLIMUS
     Indication: Immunosuppressant drug therapy
     Dates: start: 2015, end: 2022
  3. PREDNISOLONE [Suspect]
     Active Substance: PREDNISOLONE
     Indication: Immunosuppressant drug therapy
     Dates: start: 2015, end: 2022

REACTIONS (5)
  - Malignant peritoneal neoplasm [Unknown]
  - Lung abscess [Unknown]
  - COVID-19 [Unknown]
  - Immunosuppressant drug level increased [Unknown]
  - Liver abscess [Unknown]

NARRATIVE: CASE EVENT DATE: 20220101
